FAERS Safety Report 8967147 (Version 2)
Quarter: 2013Q3

REPORT INFORMATION
  Report Type: Spontaneous
  Country: US (occurrence: US)
  Receive Date: 20121214
  Receipt Date: 20130819
  Transmission Date: 20140515
  Serious: Yes (Other)
  Sender: FDA-Public Use
  Company Number: US-CELGENEUS-163-21880-12120894

PATIENT
  Sex: 0

DRUGS (6)
  1. REVLIMID [Suspect]
     Indication: PLASMA CELL MYELOMA
     Dosage: 10-25 MG
     Route: 065
  2. DEXAMETHASONE [Suspect]
     Indication: PLASMA CELL MYELOMA
     Dosage: 10-40 MG
     Route: 065
  3. DEXAMETHASONE [Suspect]
     Route: 065
  4. ASPIRIN [Concomitant]
     Indication: THROMBOSIS PROPHYLAXIS
     Route: 065
  5. HEPARIN [Concomitant]
     Indication: THROMBOSIS PROPHYLAXIS
     Route: 065
  6. VITAMIN K ANTAGONIST [Concomitant]
     Indication: THROMBOSIS PROPHYLAXIS
     Route: 065

REACTIONS (16)
  - Laryngeal cancer [Unknown]
  - Myelodysplastic syndrome [Unknown]
  - Lung neoplasm malignant [Unknown]
  - Embolism venous [Unknown]
  - Neutropenia [Unknown]
  - Thrombocytopenia [Unknown]
  - Anaemia [Unknown]
  - Sepsis syndrome [Unknown]
  - Pulmonary embolism [Unknown]
  - Diarrhoea [Unknown]
  - Skin reaction [Unknown]
  - Asthenia [Unknown]
  - Pneumonia [Unknown]
  - Herpes zoster [Unknown]
  - Toxicity to various agents [Unknown]
  - Plasma cell myeloma [Unknown]
